FAERS Safety Report 25228033 (Version 1)
Quarter: 2025Q2

REPORT INFORMATION
  Report Type: Report from Study
  Country: EG (occurrence: EG)
  Receive Date: 20250423
  Receipt Date: 20250423
  Transmission Date: 20250717
  Serious: No
  Sender: SANDOZ
  Company Number: EG-SANDOZ-SDZ2024EG084438

PATIENT
  Age: 14 Year
  Sex: Female

DRUGS (2)
  1. OMNITROPE [Suspect]
     Active Substance: SOMATROPIN
     Indication: Growth hormone deficiency
     Dosage: 1.3 MG, QD (10 MG)
     Route: 058
     Dates: start: 20221227
  2. OMNITROPE [Suspect]
     Active Substance: SOMATROPIN
     Indication: Short stature

REACTIONS (9)
  - Expired device used [Unknown]
  - Product dose omission issue [Unknown]
  - Therapy cessation [Not Recovered/Not Resolved]
  - Off label use [Unknown]
  - Wrong technique in product usage process [Unknown]
  - Device defective [Unknown]
  - Device delivery system issue [Unknown]
  - Device use issue [Unknown]
  - Device issue [Unknown]

NARRATIVE: CASE EVENT DATE: 20241229
